FAERS Safety Report 21545614 (Version 1)
Quarter: 2022Q4

REPORT INFORMATION
  Report Type: Report from Study
  Country: CA (occurrence: CA)
  Receive Date: 20221103
  Receipt Date: 20221103
  Transmission Date: 20230112
  Serious: Yes (Other)
  Sender: FDA-Public Use
  Company Number: CA-JNJFOC-20210705825

PATIENT
  Age: 15 Year
  Sex: Male
  Weight: 53 kg

DRUGS (2)
  1. REMICADE [Suspect]
     Active Substance: INFLIXIMAB
     Indication: Colitis ulcerative
     Route: 042
     Dates: start: 20200822
  2. REMICADE [Suspect]
     Active Substance: INFLIXIMAB
     Route: 042

REACTIONS (4)
  - Haematochezia [Unknown]
  - Herpes simplex [Unknown]
  - Mucous stools [Unknown]
  - Off label use [Unknown]

NARRATIVE: CASE EVENT DATE: 20200822
